FAERS Safety Report 12388341 (Version 3)
Quarter: 2016Q2

REPORT INFORMATION
  Report Type: Report from Study
  Country: FR (occurrence: FR)
  Receive Date: 20160520
  Receipt Date: 20160531
  Transmission Date: 20160815
  Serious: Yes (Hospitalization)
  Sender: FDA-Public Use
  Company Number: FR-ROCHE-1760139

PATIENT
  Age: 30 Year
  Sex: Female
  Weight: 53 kg

DRUGS (2)
  1. VEMURAFENIB [Suspect]
     Active Substance: VEMURAFENIB
     Indication: MALIGNANT MELANOMA
     Dosage: LAST DOSE OF A PRIOR TO SERIOUS ADVERSE EVENT: 02/MAY/2016 AT 960 MG, CUMULATIVE DOSE: 20160 MG
     Route: 048
     Dates: start: 20160422
  2. COBIMETINIB [Suspect]
     Active Substance: COBIMETINIB
     Indication: MALIGNANT MELANOMA
     Dosage: LAST DOSE OF A PRIOR TO SERIOUS ADVERSE EVENT: 01/MAY/2016 AT 60 MG, CUMULATIVE DOSE: 540 MG
     Route: 048
     Dates: start: 20160423

REACTIONS (1)
  - Histiocytosis haematophagic [Recovered/Resolved]

NARRATIVE: CASE EVENT DATE: 20160430
